FAERS Safety Report 8819431 (Version 1)
Quarter: 2012Q4

REPORT INFORMATION
  Report Type: 
  Country: US (occurrence: US)
  Receive Date: 20121001
  Receipt Date: 20121001
  Transmission Date: 20130627
  Serious: No
  Sender: FDA-Public Use
  Company Number: US-009507513-1209USA012011

PATIENT
  Sex: Female

DRUGS (1)
  1. VICTRELIS [Suspect]
     Dosage: 800 mg, 4 of the 200 mg capsules
     Route: 048

REACTIONS (2)
  - Memory impairment [Unknown]
  - Accidental overdose [Unknown]
